FAERS Safety Report 7451140-4 (Version None)
Quarter: 2011Q2

REPORT INFORMATION
  Report Type: 
  Country: None (occurrence: None)
  Receive Date: 20110502
  Receipt Date: 20110421
  Transmission Date: 20111010
  Serious: Yes (Other)
  Sender: FDA-Public Use
  Company Number: AU-ASTRAZENECA-2011SE23471

PATIENT
  Age: 53 Year
  Sex: Male

DRUGS (2)
  1. SEROQUEL [Suspect]
     Route: 048
  2. CIPRAMIL [Suspect]
     Route: 065

REACTIONS (3)
  - CEREBROVASCULAR DISORDER [None]
  - ASTHENIA [None]
  - APHASIA [None]
